FAERS Safety Report 12688825 (Version 1)
Quarter: 2016Q3

REPORT INFORMATION
  Report Type: Spontaneous
  Country: US (occurrence: None)
  Receive Date: 20160825
  Receipt Date: 20160825
  Transmission Date: 20161109
  Serious: Yes (Other)
  Sender: FDA-Public Use
  Company Number: None

PATIENT
  Age: 61 Year
  Sex: Female
  Weight: 54.43 kg

DRUGS (7)
  1. VITAMIN A [Concomitant]
     Active Substance: VITAMIN A
  2. SYNTHROID [Concomitant]
     Active Substance: LEVOTHYROXINE SODIUM
  3. EMERGEN C [Concomitant]
     Active Substance: MINERALS\VITAMINS
  4. HARVONI [Suspect]
     Active Substance: LEDIPASVIR\SOFOSBUVIR
     Indication: HEPATITIS C
     Route: 048
  5. CALCIUM PLUS D [Concomitant]
     Active Substance: CALCIUM\VITAMIN D
  6. ALLERGY MEDICINE [Concomitant]
     Active Substance: DIPHENHYDRAMINE HYDROCHLORIDE
  7. SPIRALACTDONE [Concomitant]

REACTIONS (3)
  - Tinnitus [None]
  - Sudden hearing loss [None]
  - Flatulence [None]

NARRATIVE: CASE EVENT DATE: 20150807
